FAERS Safety Report 24274230 (Version 2)
Quarter: 2024Q4

REPORT INFORMATION
  Report Type: Report from Study
  Country: OM (occurrence: OM)
  Receive Date: 20240902
  Receipt Date: 20241004
  Transmission Date: 20250115
  Serious: Yes (Life-Threatening)
  Sender: BIOGEN
  Company Number: OM-BIOGEN-2024BI01280675

PATIENT
  Age: 41 Year
  Sex: Female

DRUGS (2)
  1. SPINRAZA [Suspect]
     Active Substance: NUSINERSEN
     Indication: Spinal muscular atrophy
     Dosage: EVERY 2 WEEKS THEN EVERY MONTH THEN EVERY 4 MONTHS
     Route: 050
     Dates: start: 20240704
  2. AMIROL [Concomitant]
     Indication: Product used for unknown indication
     Route: 050

REACTIONS (1)
  - Asthma [Recovered/Resolved]

NARRATIVE: CASE EVENT DATE: 20240820
